FAERS Safety Report 10360835 (Version 1)
Quarter: 2014Q3

REPORT INFORMATION
  Report Type: Spontaneous
  Country: FR (occurrence: FR)
  Receive Date: 20140804
  Receipt Date: 20140804
  Transmission Date: 20150326
  Serious: Yes (Hospitalization)
  Sender: FDA-Public Use
  Company Number: FR-BAYER-2014-112758

PATIENT
  Age: 35 Year
  Sex: Female

DRUGS (3)
  1. MONURIL [Concomitant]
     Active Substance: FOSFOMYCIN SODIUM
  2. QLAIRA [Suspect]
     Active Substance: DIENOGEST\ESTRADIOL VALERATE
     Dosage: UNK
     Route: 048
     Dates: end: 20140612
  3. FORCAPIL [Concomitant]
     Active Substance: BIOTIN\CALCIUM PANTOTHENATE\CYSTINE\MAGNESIUM PIDOLATE\METHIONINE\PYRIDOXINE
     Indication: ALOPECIA

REACTIONS (1)
  - Hepatitis [Not Recovered/Not Resolved]

NARRATIVE: CASE EVENT DATE: 20140606
